FAERS Safety Report 8093320-3 (Version None)
Quarter: 2012Q1

REPORT INFORMATION
  Report Type: 
  Country: None (occurrence: None)
  Receive Date: 20120128
  Receipt Date: 20110926
  Transmission Date: 20120608
  Serious: No
  Sender: FDA-Public Use
  Company Number: US-ABBOTT-11P-163-0848019-00

PATIENT
  Age: 30 Year
  Sex: Male

DRUGS (9)
  1. UNKNOWN MEDICATION [Suspect]
     Indication: PRODUCT USED FOR UNKNOWN INDICATION
  2. DOVONEX [Concomitant]
     Indication: PSORIASIS
  3. HUMIRA [Suspect]
     Indication: ANKYLOSING SPONDYLITIS
     Route: 058
     Dates: start: 20100101
  4. ATENOLOL [Concomitant]
     Indication: HYPERTENSION
     Dates: start: 20070101
  5. VARIOUS CREAMS [Concomitant]
     Indication: PSORIASIS
     Dates: start: 20060101
  6. HUMIRA [Suspect]
     Indication: PSORIATIC ARTHROPATHY
  7. HUMIRA [Suspect]
     Indication: PSORIASIS
  8. RANITIDINE HCL [Concomitant]
     Indication: GASTRIC DISORDER
     Dates: start: 20070101
  9. TRETINOIN [Concomitant]
     Indication: PRODUCT USED FOR UNKNOWN INDICATION
     Dosage: UP TO 3 TIMES PER DAY AS NEEDED

REACTIONS (12)
  - POST-TRAUMATIC STRESS DISORDER [None]
  - INJECTION SITE HAEMORRHAGE [None]
  - INJECTION SITE HAEMATOMA [None]
  - ANXIETY [None]
  - BIPOLAR DISORDER [None]
  - CONDITION AGGRAVATED [None]
  - VITAMIN B COMPLEX DEFICIENCY [None]
  - INSOMNIA [None]
  - NEUROPATHY PERIPHERAL [None]
  - DEPRESSION [None]
  - SPINAL COLUMN STENOSIS [None]
  - PSORIASIS [None]
